FAERS Safety Report 8375903-6 (Version None)
Quarter: 2012Q2

REPORT INFORMATION
  Report Type: 
  Country: None (occurrence: None)
  Receive Date: 20120518
  Receipt Date: 20120507
  Transmission Date: 20120825
  Serious: Yes (Death, Other)
  Sender: FDA-Public Use
  Company Number: 2012P1023646

PATIENT
  Age: 35 Year
  Sex: Male
  Weight: 94 kg

DRUGS (2)
  1. OXYCODONE AND ACETAMINOPHEN [Suspect]
     Indication: HEADACHE
     Dosage: 5/325 MG; PRN; UP TO QID
  2. HYDROMORPHONE HCL [Suspect]
     Indication: ABDOMINAL PAIN LOWER
     Dosage: 3 MG;Q4H,PRN;IV, 3 MG;Q3HX6;IM
     Route: 042

REACTIONS (3)
  - PULSE ABSENT [None]
  - DRUG ADMINISTRATION ERROR [None]
  - RESPIRATORY ARREST [None]
